FAERS Safety Report 6168889-6 (Version None)
Quarter: 2009Q2

REPORT INFORMATION
  Report Type: 
  Country: None (occurrence: None)
  Receive Date: 20090424
  Receipt Date: 20090424
  Transmission Date: 20091009
  Serious: Yes (Hospitalization)
  Sender: FDA-Public Use
  Company Number: None

PATIENT
  Age: 54 Year
  Sex: Female
  Weight: 72 kg

DRUGS (9)
  1. ZOLPIDEM [Suspect]
     Indication: INSOMNIA
     Dosage: 20 MG HS PO
     Route: 048
  2. IMITREX [Concomitant]
  3. LEVOTHYROXINE SODIUM [Concomitant]
  4. MULTI-VITAMIN [Concomitant]
  5. THIAMINE HCL [Concomitant]
  6. TOPIRAMATE [Concomitant]
  7. VENLAFAXINE HCL [Concomitant]
  8. BUPROPION HCL [Concomitant]
  9. ZIPRASIDONE HCL [Concomitant]

REACTIONS (5)
  - AGGRESSION [None]
  - CONFUSIONAL STATE [None]
  - DELIRIUM [None]
  - FROSTBITE [None]
  - MENTAL STATUS CHANGES [None]
